FAERS Safety Report 7552459-9 (Version None)
Quarter: 2011Q2

REPORT INFORMATION
  Report Type: 
  Country: None (occurrence: None)
  Receive Date: 20110616
  Receipt Date: 20110614
  Transmission Date: 20111010
  Serious: Yes (Other)
  Sender: FDA-Public Use
  Company Number: US-PFIZER INC-2007015626

PATIENT
  Sex: Female
  Weight: 92.063 kg

DRUGS (17)
  1. CHANTIX [Suspect]
     Dosage: 0.5 MG, 1X/DAY
     Dates: start: 20110613
  2. OXYCODONE [Concomitant]
     Indication: FIBROMYALGIA
     Dosage: 40 MG, UNK
  3. DIOVAN HCT [Concomitant]
     Indication: HYPERTENSION
     Dosage: 160/25 MG, UNK
  4. ALBUTEROL SULFATE AUTOHALER [Concomitant]
     Indication: DYSPNOEA
     Dosage: UNK
  5. ROXICODONE [Concomitant]
     Indication: BACK PAIN
     Dosage: 15 MG, 3X/DAY
  6. ADVAIR DISKUS 100/50 [Concomitant]
     Dosage: 250/50 MG, 2X/DAY
  7. PAXIL CR [Concomitant]
     Dosage: UNK
  8. NEURONTIN [Concomitant]
     Dosage: 300 MG, UNK
  9. CHANTIX [Suspect]
     Dosage: 0.5 MG, 2X/DAY
     Route: 048
     Dates: start: 20070216, end: 20070219
  10. HYDROCHLOROTHIAZIDE [Concomitant]
     Dosage: UNK
  11. OXYCODONE [Concomitant]
     Indication: SPINAL COLUMN STENOSIS
  12. CHANTIX [Suspect]
     Dosage: 1 MG, 2X/DAY
     Route: 048
     Dates: start: 20070220
  13. GLUCOPHAGE [Concomitant]
     Indication: TYPE 2 DIABETES MELLITUS
     Dosage: 500 MG, 2X/DAY
  14. ZANAFLEX [Concomitant]
     Indication: MUSCLE RELAXANT THERAPY
     Dosage: 4 MG, 2X/DAY
  15. CHANTIX [Suspect]
     Indication: SMOKING CESSATION THERAPY
     Dosage: 0.5 MG, 1X/DAY
     Route: 048
     Dates: start: 20070213, end: 20070215
  16. PERCOCET [Concomitant]
  17. SPIRIVA [Concomitant]
     Indication: CHRONIC OBSTRUCTIVE PULMONARY DISEASE
     Dosage: UNK

REACTIONS (2)
  - BLOOD GLUCOSE INCREASED [None]
  - VISUAL IMPAIRMENT [None]
